FAERS Safety Report 6070863-5 (Version None)
Quarter: 2009Q1

REPORT INFORMATION
  Report Type: 
  Country: None (occurrence: None)
  Receive Date: 20090209
  Receipt Date: 20081010
  Transmission Date: 20090719
  Serious: No
  Sender: FDA-Public Use
  Company Number: A0751345A

PATIENT
  Age: 90 Year
  Sex: Female

DRUGS (7)
  1. PAXIL [Suspect]
     Indication: DRUG USE FOR UNKNOWN INDICATION
     Dosage: 37.5MG PER DAY
     Route: 048
     Dates: start: 20060101
  2. NITROGLYCERIN [Concomitant]
  3. LEVOXYL [Concomitant]
  4. ATENOLOL [Concomitant]
  5. NORVASC [Concomitant]
  6. ZOCOR [Concomitant]
  7. LISINOPRIL [Concomitant]

REACTIONS (2)
  - FALL [None]
  - INJURY [None]
